FAERS Safety Report 4846996-5 (Version None)
Quarter: 2005Q4

REPORT INFORMATION
  Report Type: 
  Country: None (occurrence: None)
  Receive Date: 20051201
  Receipt Date: 20051122
  Transmission Date: 20060501
  Serious: Yes (Other)
  Sender: FDA-Public Use
  Company Number: 2005158448

PATIENT
  Age: 28 Year
  Sex: Female
  Weight: 58.9676 kg

DRUGS (1)
  1. NATURAL CITRUS LISTERINE (MENTHOL, METHYL SALICYLATE, EUCALYPTOL, THYM [Suspect]
     Indication: INTENTIONAL OVERDOSE
     Dosage: 1/2 BOTTLE ONCE, ORAL
     Route: 048
     Dates: start: 20051120, end: 20051120

REACTIONS (2)
  - INTENTIONAL DRUG MISUSE [None]
  - VOMITING [None]
